FAERS Safety Report 14166827 (Version 1)
Quarter: 2017Q4

REPORT INFORMATION
  Report Type: Spontaneous
  Country: AU (occurrence: AU)
  Receive Date: 20171107
  Receipt Date: 20171107
  Transmission Date: 20180321
  Serious: Yes (Other)
  Sender: FDA-Public Use
  Company Number: AU-BIOTEST PHARMACEUTICALS CORPORATION-AU-2017ADM000253

PATIENT

DRUGS (1)
  1. HUMAN IMMUNOGLOBULIN [Suspect]
     Active Substance: HUMAN IMMUNOGLOBULIN G
     Indication: APLASIA PURE RED CELL
     Dosage: 2 G/KG IN TWO DIVIDED DOSES, THREE DAYS APART

REACTIONS (1)
  - Splenic rupture [Unknown]
